FAERS Safety Report 6840212-0 (Version None)
Quarter: 2010Q3

REPORT INFORMATION
  Report Type: 
  Country: None (occurrence: None)
  Receive Date: 20100713
  Receipt Date: 20100713
  Transmission Date: 20110219
  Serious: No
  Sender: FDA-Public Use
  Company Number: None

PATIENT

DRUGS (1)
  1. QUININE [Suspect]

REACTIONS (6)
  - CHILLS [None]
  - GASTROENTERITIS [None]
  - HAEMORRHAGE [None]
  - MUCOUS MEMBRANE DISORDER [None]
  - PLATELET COUNT DECREASED [None]
  - PURPURA [None]
